FAERS Safety Report 20658217 (Version 1)
Quarter: 2022Q1

REPORT INFORMATION
  Report Type: Spontaneous
  Country: US (occurrence: US)
  Receive Date: 20220331
  Receipt Date: 20220331
  Transmission Date: 20220423
  Serious: No
  Sender: FDA-Public Use
  Company Number: US-AMGEN-USASP2022056156

PATIENT
  Sex: Female

DRUGS (14)
  1. OTEZLA [Suspect]
     Active Substance: APREMILAST
     Indication: Brain neoplasm malignant
     Dosage: 30 MILLIGRAM, BID
     Route: 048
     Dates: start: 20190325
  2. OTEZLA [Suspect]
     Active Substance: APREMILAST
     Indication: Off label use
  3. ACETAMINOPHEN [Concomitant]
     Active Substance: ACETAMINOPHEN
  4. ATIVAN [Concomitant]
     Active Substance: LORAZEPAM
  5. BENADRYL [Concomitant]
     Active Substance: DIPHENHYDRAMINE HYDROCHLORIDE
  6. BETAMETHASONE [Concomitant]
     Active Substance: BETAMETHASONE
  7. BUPROPION HYDROCHLORIDE [Concomitant]
     Active Substance: BUPROPION HYDROCHLORIDE
  8. IBUPROFEN [Concomitant]
     Active Substance: IBUPROFEN
  9. KEPPRA [Concomitant]
     Active Substance: LEVETIRACETAM
  10. LIDOCAINE [Concomitant]
     Active Substance: LIDOCAINE
  11. MELATONIN [Concomitant]
     Active Substance: MELATONIN
  12. MIRALAX [Concomitant]
     Active Substance: POLYETHYLENE GLYCOL 3350
  13. ONDANSETRON [Concomitant]
     Active Substance: ONDANSETRON
  14. SUMATRIPTAN [Concomitant]
     Active Substance: SUMATRIPTAN

REACTIONS (1)
  - Off label use [Unknown]
